FAERS Safety Report 5501526-X (Version None)
Quarter: 2007Q4

REPORT INFORMATION
  Report Type: 
  Country: None (occurrence: None)
  Receive Date: 20071026
  Receipt Date: 20071011
  Transmission Date: 20080405
  Serious: Yes (Other)
  Sender: FDA-Public Use
  Company Number: 162908ISR

PATIENT
  Age: 9 Year
  Sex: Female

DRUGS (4)
  1. CARBOPLATIN [Suspect]
     Indication: RETINOBLASTOMA BILATERAL
     Dosage: (80 MG, 4 / CYCLICAL) SUNCONJUNCTIVAL, (1160 MG, 4 / CYCLICAL)
     Route: 057
  2. CYCLOSPORINE [Suspect]
     Indication: RETINOBLASTOMA BILATERAL
     Dosage: (3000 MG, 4 / CYCLICAL)
  3. TENIPOSIDE [Suspect]
     Indication: RETINOBLASTOMA BILATERAL
     Dosage: (480 MG, 4 / CYCLICAL)
  4. VINCRISTINE [Suspect]
     Indication: RETINOBLASTOMA BILATERAL
     Dosage: (2 MG, 4 / CYCLICAL) PARENTERAL
     Route: 051

REACTIONS (2)
  - ACUTE MYELOID LEUKAEMIA [None]
  - BONE MARROW TRANSPLANT [None]
